FAERS Safety Report 21209223 (Version 1)
Quarter: 2022Q3

REPORT INFORMATION
  Report Type: Spontaneous
  Country: FR (occurrence: None)
  Receive Date: 20220813
  Receipt Date: 20220813
  Transmission Date: 20221026
  Serious: Yes (Other)
  Sender: FDA-Public Use
  Company Number: 2022A277920

PATIENT
  Age: 93 Year
  Sex: Female
  Weight: 75 kg

DRUGS (1)
  1. FASENRA [Suspect]
     Active Substance: BENRALIZUMAB
     Indication: Asthma
     Dosage: 30 MG EVERY 4 WEEKS DURING 12 WEEKS THEN EVERY 8 WEEKS
     Route: 058
     Dates: start: 202203, end: 202205

REACTIONS (2)
  - Somnolence [Unknown]
  - Asthenia [Unknown]

NARRATIVE: CASE EVENT DATE: 20220301
